FAERS Safety Report 8049524-9 (Version None)
Quarter: 2012Q1

REPORT INFORMATION
  Report Type: 
  Country: None (occurrence: None)
  Receive Date: 20120117
  Receipt Date: 20120106
  Transmission Date: 20120608
  Serious: No
  Sender: FDA-Public Use
  Company Number: US-ROXANE LABORATORIES, INC.-2012-RO-00453RO

PATIENT
  Sex: Female

DRUGS (1)
  1. BUPRENORPHINE HCL [Suspect]
     Indication: DRUG DEPENDENCE
     Dosage: 8 MG
     Route: 060

REACTIONS (3)
  - PRODUCT TASTE ABNORMAL [None]
  - SKIN DISCOLOURATION [None]
  - FEELING COLD [None]
